FAERS Safety Report 19186946 (Version 12)
Quarter: 2022Q2

REPORT INFORMATION
  Report Type: Report from Study
  Country: GB (occurrence: GB)
  Receive Date: 20210428
  Receipt Date: 20220629
  Transmission Date: 20220720
  Serious: Yes (Other)
  Sender: FDA-Public Use
  Company Number: GB-JNJFOC-20201122353

PATIENT

DRUGS (6)
  1. PREDNISOLONE [Suspect]
     Active Substance: PREDNISOLONE
     Indication: Prostate cancer
     Dosage: 10 MG, QD
     Route: 048
     Dates: start: 20191129, end: 20220318
  2. ABIRATERONE ACETATE [Suspect]
     Active Substance: ABIRATERONE ACETATE
     Indication: Prostate cancer
     Dosage: 1000 MG
     Route: 048
     Dates: start: 20191129, end: 202206
  3. IBUPROFEN [Concomitant]
     Active Substance: IBUPROFEN
     Indication: Pain
     Dosage: 400 MG, PRN
     Route: 048
  4. ACETAMINOPHEN [Concomitant]
     Active Substance: ACETAMINOPHEN
     Indication: Pain
     Dosage: 1 G, PRN (AS NECESSARY)
     Route: 048
  5. CHOLECALCIFEROL [Concomitant]
     Active Substance: CHOLECALCIFEROL
     Indication: Product used for unknown indication
     Dosage: UNK
     Route: 048
     Dates: start: 202112
  6. DEXAMETHASONE [Concomitant]
     Active Substance: DEXAMETHASONE
     Indication: Prostate cancer
     Dosage: 0.5 MG
     Route: 048
     Dates: start: 20220318

REACTIONS (12)
  - Blood alkaline phosphatase increased [Not Recovered/Not Resolved]
  - Muscular weakness [Unknown]
  - Micturition urgency [Recovering/Resolving]
  - Abnormal loss of weight [Recovering/Resolving]
  - Fall [Recovering/Resolving]
  - Paraesthesia [Recovering/Resolving]
  - Arthralgia [Recovered/Resolved]
  - Back pain [Recovered/Resolved]
  - Prostatic specific antigen increased [Not Recovered/Not Resolved]
  - Metastases to bone [Unknown]
  - Contusion [Recovering/Resolving]
  - Blood potassium decreased [Recovered/Resolved]

NARRATIVE: CASE EVENT DATE: 20201111
